FAERS Safety Report 7332831-2 (Version None)
Quarter: 2011Q1

REPORT INFORMATION
  Report Type: 
  Country: None (occurrence: None)
  Receive Date: 20110304
  Receipt Date: 20110228
  Transmission Date: 20110831
  Serious: Yes (Hospitalization)
  Sender: FDA-Public Use
  Company Number: FR-MERCK-1102FRA00188

PATIENT
  Age: 43 Year
  Sex: Female

DRUGS (6)
  1. MOXIFLOXACIN HYDROCHLORIDE [Suspect]
     Route: 048
     Dates: start: 20101120, end: 20101127
  2. FENOTEROL HYDROBROMIDE AND IPRATROPIUM BROMIDE [Suspect]
     Indication: ASTHMA
     Route: 055
     Dates: start: 20101120, end: 20101202
  3. BUDESONIDE AND FORMOTEROL FUMARATE [Concomitant]
     Route: 065
     Dates: start: 20091001
  4. EBASTINE [Concomitant]
     Route: 065
  5. SINGULAIR [Suspect]
     Indication: ASTHMA
     Route: 048
     Dates: start: 20091001, end: 20101202
  6. FLUTICASONE PROPIONATE [Concomitant]
     Route: 065

REACTIONS (1)
  - EOSINOPHILIC PNEUMONIA ACUTE [None]
